FAERS Safety Report 23169292 (Version 25)
Quarter: 2024Q4

REPORT INFORMATION
  Report Type: Report from Study
  Country: CA (occurrence: CA)
  Receive Date: 20231110
  Receipt Date: 20241224
  Transmission Date: 20250115
  Serious: Yes (Hospitalization, Other)
  Sender: ROCHE
  Company Number: CA-ROCHE-2873081

PATIENT
  Age: 82 Year
  Sex: Female
  Weight: 53.0 kg

DRUGS (28)
  1. ACTEMRA ACTPEN [Suspect]
     Active Substance: TOCILIZUMAB
     Indication: Rheumatoid arthritis
     Dosage: DRUG DOSE FIRST ADMINISTERED IS 162 MG MILLIGRAM(S)?0.9ML PFS
     Route: 058
     Dates: start: 20210521, end: 20211119
  2. ACTEMRA ACTPEN [Suspect]
     Active Substance: TOCILIZUMAB
     Indication: Polymyalgia rheumatica
     Dosage: DRUG DOSE FIRST ADMINISTERED IS 162 MG MILLIGRAM(S)
     Route: 058
     Dates: start: 20211203, end: 20240328
  3. ACTEMRA ACTPEN [Suspect]
     Active Substance: TOCILIZUMAB
     Indication: Giant cell arteritis
     Dosage: DRUG DOSE FIRST ADMINISTERED IS 162 MG MILLIGRAM(S)
     Route: 058
     Dates: start: 20240419
  4. ACTEMRA ACTPEN [Suspect]
     Active Substance: TOCILIZUMAB
     Route: 058
  5. ACTEMRA ACTPEN [Suspect]
     Active Substance: TOCILIZUMAB
     Route: 058
  6. ACTEMRA ACTPEN [Suspect]
     Active Substance: TOCILIZUMAB
     Route: 058
  7. ACTEMRA ACTPEN [Suspect]
     Active Substance: TOCILIZUMAB
     Route: 058
  8. ACTEMRA ACTPEN [Suspect]
     Active Substance: TOCILIZUMAB
     Route: 058
  9. ACTEMRA ACTPEN [Suspect]
     Active Substance: TOCILIZUMAB
     Route: 058
  10. ACTEMRA ACTPEN [Suspect]
     Active Substance: TOCILIZUMAB
     Route: 058
  11. ACTEMRA ACTPEN [Suspect]
     Active Substance: TOCILIZUMAB
     Route: 058
  12. ACTEMRA ACTPEN [Suspect]
     Active Substance: TOCILIZUMAB
     Route: 058
  13. ACTEMRA ACTPEN [Suspect]
     Active Substance: TOCILIZUMAB
     Route: 058
  14. ACTEMRA ACTPEN [Suspect]
     Active Substance: TOCILIZUMAB
     Route: 058
  15. ACTEMRA ACTPEN [Suspect]
     Active Substance: TOCILIZUMAB
     Route: 058
  16. ACTEMRA ACTPEN [Suspect]
     Active Substance: TOCILIZUMAB
     Route: 058
  17. AMLODIPINE [Concomitant]
     Active Substance: AMLODIPINE BESYLATE
  18. CALCIUM [Concomitant]
     Active Substance: CALCIUM
  19. CANDESARTAN [Concomitant]
     Active Substance: CANDESARTAN
     Indication: Hypertension
     Route: 048
  20. CODEINE [Concomitant]
     Active Substance: CODEINE
  21. ELIQUIS [Concomitant]
     Active Substance: APIXABAN
  22. IRBESARTAN [Concomitant]
     Active Substance: IRBESARTAN
  23. METOPROLOL [Concomitant]
     Active Substance: METOPROLOL
  24. NITROGLYCERIN [Concomitant]
     Active Substance: NITROGLYCERIN
  25. PREDNISONE [Concomitant]
     Active Substance: PREDNISONE
  26. PROLIA [Concomitant]
     Active Substance: DENOSUMAB
     Indication: Osteoporosis
  27. ROPINIROLE [Concomitant]
     Active Substance: ROPINIROLE
  28. OMEPRAZOLE [Concomitant]
     Active Substance: OMEPRAZOLE

REACTIONS (16)
  - Blood pressure increased [Unknown]
  - Weight decreased [Unknown]
  - Blood pressure diastolic increased [Unknown]
  - Blood pressure systolic increased [Unknown]
  - Headache [Not Recovered/Not Resolved]
  - Blood pressure diastolic increased [Unknown]
  - Heart rate decreased [Unknown]
  - Oxygen saturation decreased [Unknown]
  - Chest pain [Unknown]
  - Pain in extremity [Unknown]
  - Pain in jaw [Unknown]
  - Oedema [Unknown]
  - Off label use [Unknown]
  - Tooth fracture [Unknown]
  - Tooth discolouration [Unknown]
  - Fatigue [Unknown]

NARRATIVE: CASE EVENT DATE: 20210715
